FAERS Safety Report 4467108-6 (Version None)
Quarter: 2004Q4

REPORT INFORMATION
  Report Type: 
  Country: None (occurrence: None)
  Receive Date: 20041004
  Receipt Date: 20041004
  Transmission Date: 20050328
  Serious: Yes (Hospitalization)
  Sender: FDA-Public Use
  Company Number: None

PATIENT
  Age: 46 Year
  Sex: Male
  Weight: 106.7 kg

DRUGS (3)
  1. LISINOPRIL [Suspect]
     Indication: DIABETES MELLITUS
     Dosage: 5 MG EVERY MORNING (PO)
     Route: 048
     Dates: start: 20040617, end: 20040913
  2. LISINOPRIL [Suspect]
     Indication: PROPHYLAXIS
     Dosage: 5 MG EVERY MORNING (PO)
     Route: 048
     Dates: start: 20040617, end: 20040913
  3. LISINOPRIL [Suspect]
     Indication: RENAL DISORDER
     Dosage: 5 MG EVERY MORNING (PO)
     Route: 048
     Dates: start: 20040617, end: 20040913

REACTIONS (12)
  - AGGRESSION [None]
  - ANGER [None]
  - CONFUSIONAL STATE [None]
  - COUGH [None]
  - DYSPNOEA [None]
  - ERYTHEMA [None]
  - FEELING ABNORMAL [None]
  - PRURITUS GENERALISED [None]
  - SOMNOLENCE [None]
  - STRIDOR [None]
  - SWOLLEN TONGUE [None]
  - TREATMENT NONCOMPLIANCE [None]
